FAERS Safety Report 4586415-X (Version None)
Quarter: 2005Q1

REPORT INFORMATION
  Report Type: 
  Country: None (occurrence: None)
  Receive Date: 20050218
  Receipt Date: 20050210
  Transmission Date: 20050727
  Serious: Yes (Hospitalization)
  Sender: FDA-Public Use
  Company Number: PHRM2005FR00774

PATIENT
  Age: 36 Year
  Sex: Female

DRUGS (2)
  1. FOLIC ACID [Concomitant]
  2. TEGRETOL [Suspect]
     Indication: PARTIAL SEIZURES
     Dosage: 200 MG/DAY
     Route: 048
     Dates: start: 19750101

REACTIONS (8)
  - ABORTION INDUCED [None]
  - BICUSPID AORTIC VALVE [None]
  - CONGENITAL AORTIC STENOSIS [None]
  - CONGENITAL CARDIOVASCULAR ANOMALY [None]
  - CONGENITAL CORONARY ARTERY MALFORMATION [None]
  - DILATATION VENTRICULAR [None]
  - DRUG EXPOSURE DURING PREGNANCY [None]
  - ENDOCARDIAL FIBROELASTOSIS [None]
